FAERS Safety Report 17759776 (Version 1)
Quarter: 2020Q2

REPORT INFORMATION
  Report Type: Spontaneous
  Country: US (occurrence: US)
  Receive Date: 20200508
  Receipt Date: 20200508
  Transmission Date: 20200714
  Serious: Yes (Death, Hospitalization)
  Sender: FDA-Public Use
  Company Number: US-EMCURE PHARMACEUTICALS LTD-2020-EPL-000592

PATIENT
  Age: 87 Year
  Sex: Male

DRUGS (1)
  1. METFORMIN [Suspect]
     Active Substance: METFORMIN HYDROCHLORIDE
     Indication: PRODUCT USED FOR UNKNOWN INDICATION
     Dosage: 1000 MILLIGRAM, BID
     Route: 065

REACTIONS (4)
  - Lactic acidosis [Not Recovered/Not Resolved]
  - Shock [Recovering/Resolving]
  - Toxicity to various agents [Not Recovered/Not Resolved]
  - Respiratory failure [Fatal]
